FAERS Safety Report 25507155 (Version 1)
Quarter: 2025Q3

REPORT INFORMATION
  Report Type: Spontaneous
  Country: EU (occurrence: EU)
  Receive Date: 20250703
  Receipt Date: 20250703
  Transmission Date: 20251021
  Serious: Yes (Hospitalization, Other)
  Sender: ELI LILLY AND COMPANY
  Company Number: EU-ELI_LILLY_AND_COMPANY-FR202506021799

PATIENT
  Age: 36 Year
  Sex: Male

DRUGS (4)
  1. TIRZEPATIDE [Suspect]
     Active Substance: TIRZEPATIDE
     Indication: Weight decreased
     Route: 065
  2. TIRZEPATIDE [Suspect]
     Active Substance: TIRZEPATIDE
     Route: 065
  3. INSULIN ASPART [Concomitant]
     Active Substance: INSULIN ASPART
     Indication: Type 1 diabetes mellitus
     Dosage: 70 INTERNATIONAL UNIT, DAILY
     Route: 065
  4. INSULIN ASPART [Concomitant]
     Active Substance: INSULIN ASPART
     Dosage: 20 INTERNATIONAL UNIT, DAILY
     Route: 065

REACTIONS (10)
  - Diabetic ketoacidosis [Unknown]
  - Dysphagia [Unknown]
  - Malnutrition [Unknown]
  - Malaise [Unknown]
  - Decreased appetite [Recovered/Resolved]
  - Prealbumin decreased [Unknown]
  - Folate deficiency [Unknown]
  - Vitamin D deficiency [Unknown]
  - Dyspepsia [Unknown]
  - Weight decreased [Unknown]
